FAERS Safety Report 9157232 (Version 1)
Quarter: 2013Q1

REPORT INFORMATION
  Report Type: Spontaneous
  Country: US (occurrence: None)
  Receive Date: 20130312
  Receipt Date: 20130312
  Transmission Date: 20140127
  Serious: No
  Sender: FDA-Public Use
  Company Number: None

PATIENT
  Age: 70 Year
  Sex: Female
  Weight: 67.13 kg

DRUGS (2)
  1. METHYLPREDNISOLONE ACETATE [Suspect]
     Indication: POST LAMINECTOMY SYNDROME
     Dosage: 80MG  PRN  EPIDURAL
     Route: 008
     Dates: start: 20120814, end: 20120814
  2. METHYLPREDNISOLONE ACETATE [Suspect]
     Indication: RADICULAR PAIN
     Dosage: 80MG  PRN  EPIDURAL
     Route: 008
     Dates: start: 20120814, end: 20120814

REACTIONS (4)
  - Product contamination [None]
  - Headache [None]
  - Asthenia [None]
  - Nausea [None]
